FAERS Safety Report 6214046-4 (Version None)
Quarter: 2009Q2

REPORT INFORMATION
  Report Type: 
  Country: None (occurrence: None)
  Receive Date: 20090604
  Receipt Date: 20090528
  Transmission Date: 20091009
  Serious: Yes (Hospitalization, Other)
  Sender: FDA-Public Use
  Company Number: US-AMGEN-QUU342181

PATIENT
  Sex: Female
  Weight: 59 kg

DRUGS (6)
  1. EPOGEN [Suspect]
     Indication: DIALYSIS
     Route: 058
     Dates: start: 20080904, end: 20090312
  2. PRILOSEC [Concomitant]
  3. PREDNISONE [Concomitant]
     Dates: start: 20080901
  4. POTASSIUM CHLORIDE [Concomitant]
     Dates: start: 20090301
  5. CELLCEPT [Concomitant]
     Dates: start: 20080801, end: 20090201
  6. MYFORTIC [Concomitant]
     Dates: start: 20090201

REACTIONS (7)
  - ANAEMIA [None]
  - DIVERTICULUM [None]
  - GASTRITIS [None]
  - HAEMORRHOIDS [None]
  - HYPOGAMMAGLOBULINAEMIA [None]
  - RETICULOCYTE COUNT DECREASED [None]
  - VOMITING [None]
